FAERS Safety Report 9468463 (Version 1)
Quarter: 2013Q3

REPORT INFORMATION
  Report Type: Spontaneous
  Country: DE (occurrence: DE)
  Receive Date: 20130821
  Receipt Date: 20130821
  Transmission Date: 20140515
  Serious: Yes (Hospitalization)
  Sender: FDA-Public Use
  Company Number: DE-GLAXOSMITHKLINE-B0916537A

PATIENT
  Age: 67 Year
  Sex: Female

DRUGS (4)
  1. NICOTINE [Suspect]
     Route: 065
  2. TRAMADOL [Suspect]
     Route: 065
  3. BROMAZEPAM [Suspect]
     Route: 065
  4. AMISULPRIDE [Concomitant]
     Route: 065

REACTIONS (1)
  - Drug dependence [Unknown]
